FAERS Safety Report 8449368-X (Version None)
Quarter: 2012Q2

REPORT INFORMATION
  Report Type: 
  Country: None (occurrence: None)
  Receive Date: 20120619
  Receipt Date: 20120614
  Transmission Date: 20120825
  Serious: Yes (Death)
  Sender: FDA-Public Use
  Company Number: US-PFIZER INC-2012144637

PATIENT
  Sex: Female

DRUGS (1)
  1. TORISEL [Suspect]
     Indication: RENAL CANCER
     Dosage: 25 MG, UNK
     Dates: start: 20120404

REACTIONS (1)
  - DEATH [None]
